FAERS Safety Report 14868410 (Version 1)
Quarter: 2018Q2

REPORT INFORMATION
  Report Type: Spontaneous
  Country: DE (occurrence: DE)
  Receive Date: 20180509
  Receipt Date: 20180509
  Transmission Date: 20180711
  Serious: Yes (Death)
  Sender: FDA-Public Use
  Company Number: DE-DRREDDYS-GER/GER/18/0098643

PATIENT
  Age: 64 Year
  Sex: Male
  Weight: 135 kg

DRUGS (1)
  1. DOCETAXEL. [Suspect]
     Active Substance: DOCETAXEL
     Indication: BREAST CANCER
     Dosage: 60 MG I.V. WEEKLY
     Route: 042
     Dates: start: 20161018, end: 20161108

REACTIONS (3)
  - General physical condition abnormal [Fatal]
  - Malignant neoplasm progression [Fatal]
  - Off label use [Unknown]

NARRATIVE: CASE EVENT DATE: 20161018
